FAERS Safety Report 15275126 (Version 2)
Quarter: 2018Q3

REPORT INFORMATION
  Report Type: Spontaneous
  Country: US (occurrence: US)
  Receive Date: 20180814
  Receipt Date: 20180816
  Transmission Date: 20181010
  Serious: No
  Sender: FDA-Public Use
  Company Number: US-PFIZER INC-2018323015

PATIENT
  Sex: Male

DRUGS (1)
  1. TOVIAZ [Suspect]
     Active Substance: FESOTERODINE FUMARATE
     Indication: INCONTINENCE
     Dosage: 4 MG, UNK
     Dates: start: 20180801

REACTIONS (2)
  - Insomnia [Unknown]
  - Pollakiuria [Unknown]

NARRATIVE: CASE EVENT DATE: 20180807
